FAERS Safety Report 25882275 (Version 2)
Quarter: 2025Q4

REPORT INFORMATION
  Report Type: Spontaneous
  Country: CL (occurrence: CL)
  Receive Date: 20251006
  Receipt Date: 20251106
  Transmission Date: 20260118
  Serious: Yes (Death)
  Sender: ROCHE
  Company Number: CL-ROCHE-10000401717

PATIENT
  Age: 43 Year
  Sex: Female

DRUGS (1)
  1. GLOFITAMAB-GXBM [Suspect]
     Active Substance: GLOFITAMAB-GXBM
     Indication: Diffuse large B-cell lymphoma
     Dosage: DOSE AND FREQUENCY WERE NOT REPORTED.?RECEIVES FIRST CYCLE ONLY.
     Route: 065

REACTIONS (1)
  - Disease progression [Fatal]
